FAERS Safety Report 14098726 (Version 4)
Quarter: 2017Q4

REPORT INFORMATION
  Report Type: Report from Study
  Country: FR (occurrence: FR)
  Receive Date: 20171017
  Receipt Date: 20171218
  Transmission Date: 20180321
  Serious: Yes (Hospitalization, Other)
  Sender: FDA-Public Use
  Company Number: FR-TOLMAR, INC.-2017FR013921

PATIENT
  Age: 72 Year
  Sex: Male
  Weight: 68 kg

DRUGS (2)
  1. ELIGARD [Suspect]
     Active Substance: LEUPROLIDE ACETATE
     Indication: PROSTATE CANCER
     Dosage: 45 MG, UNK
     Route: 058
     Dates: start: 20111020, end: 20130418
  2. AMAREL [Concomitant]
     Active Substance: GLIMEPIRIDE
     Dosage: UNK

REACTIONS (1)
  - Colon neoplasm [Recovered/Resolved]

NARRATIVE: CASE EVENT DATE: 20170904
